FAERS Safety Report 7325157-4 (Version None)
Quarter: 2011Q1

REPORT INFORMATION
  Report Type: 
  Country: None (occurrence: None)
  Receive Date: 20110302
  Receipt Date: 20110217
  Transmission Date: 20110831
  Serious: Yes (Hospitalization, Other)
  Sender: FDA-Public Use
  Company Number: PHHY2010US38740

PATIENT
  Sex: Female

DRUGS (18)
  1. METOCLOPRAMIDE HCL [Concomitant]
     Dosage: 10 MG 1 TAB BEFORE MEAL AND QHS
  2. AMITRIPTYLINE HCL [Concomitant]
     Dosage: 2 DF, QHS
  3. DOXAZOSIN [Concomitant]
     Dosage: 1 MG, QD
  4. AMPYRA [Concomitant]
     Dosage: 10 MG, QD
  5. METOPROLOL [Concomitant]
     Dosage: 25 MG, QD
  6. DETROL [Concomitant]
     Dosage: 2 MG, QD
  7. BACLOFEN [Concomitant]
     Dosage: 2 DF, QID
  8. VITAMIN D [Concomitant]
     Dosage: 1000 MG, QD
  9. CLONIDINE [Concomitant]
     Dosage: 1 MG, BID
  10. EXTAVIA [Suspect]
     Indication: MULTIPLE SCLEROSIS
     Dosage: 0.25 MG, QOD
     Route: 058
     Dates: start: 20100522
  11. GABAPENTIN [Concomitant]
     Dosage: 60 MG, QD
  12. MELOXICAM [Concomitant]
     Dosage: 50 MG, QD
  13. OXYCODONE [Concomitant]
     Dosage: 5/325 PRN
  14. CYMBALTA [Concomitant]
     Dosage: 60 MG, QD
  15. TEMAZEPAM [Concomitant]
     Dosage: 30 MG, QHS
  16. THIAMINE [Concomitant]
     Dosage: 100 MG, QD
  17. AMPYRA [Concomitant]
     Dosage: 10 MG, BID
  18. ALBUTEROL [Concomitant]
     Dosage: 90 UG, Q4H

REACTIONS (19)
  - INFLUENZA LIKE ILLNESS [None]
  - DYSPNOEA [None]
  - OEDEMA PERIPHERAL [None]
  - FEELING COLD [None]
  - INSOMNIA [None]
  - BALANCE DISORDER [None]
  - EATING DISORDER [None]
  - HEADACHE [None]
  - MUSCLE SPASMS [None]
  - ABDOMINAL DISCOMFORT [None]
  - INJECTION SITE OEDEMA [None]
  - PYREXIA [None]
  - URINARY INCONTINENCE [None]
  - FATIGUE [None]
  - HALLUCINATION [None]
  - INJECTION SITE ERYTHEMA [None]
  - INJECTION SITE HAEMATOMA [None]
  - URINARY TRACT INFECTION [None]
  - HEMIPARESIS [None]
